FAERS Safety Report 15431659 (Version 2)
Quarter: 2018Q4

REPORT INFORMATION
  Report Type: Spontaneous
  Country: FR (occurrence: FR)
  Receive Date: 20180926
  Receipt Date: 20181127
  Transmission Date: 20190204
  Serious: Yes (Hospitalization)
  Sender: FDA-Public Use
  Company Number: FR-TEVA-2018-FR-958324

PATIENT
  Age: 31 Year
  Sex: Male

DRUGS (6)
  1. TERCIAN [Suspect]
     Active Substance: CYAMEMAZINE
     Indication: SCHIZOPHRENIA
     Dosage: 25 MILLIGRAM DAILY; STRENGTH: 25 MG
     Route: 048
     Dates: start: 200801, end: 20120617
  2. VENLAFAXINE HYDROCHLORIDE. [Suspect]
     Active Substance: VENLAFAXINE HYDROCHLORIDE
     Indication: PRODUCT USED FOR UNKNOWN INDICATION
     Dosage: 75 MILLIGRAM DAILY; STRENGTH: 75 MG
     Route: 048
     Dates: start: 201201
  3. SURGAM [Concomitant]
     Active Substance: TIAPROFENIC ACID
     Indication: OROPHARYNGEAL PAIN
     Dosage: 100 MILLIGRAM DAILY;
     Route: 048
     Dates: start: 20120616
  4. CHLORHEXIDINE GLUCONATE/TETRACAINE HYDROCHLORIDE [Concomitant]
     Indication: OROPHARYNGEAL PAIN
     Route: 048
     Dates: start: 20120615
  5. TEMESTA [LORAZEPAM] [Concomitant]
     Active Substance: LORAZEPAM
     Route: 048
     Dates: start: 2007
  6. CLOZAPINE. [Suspect]
     Active Substance: CLOZAPINE
     Indication: SCHIZOPHRENIA
     Dosage: 300 MILLIGRAM DAILY;
     Route: 048
     Dates: start: 20100414, end: 20120617

REACTIONS (2)
  - Agranulocytosis [Recovered/Resolved]
  - Laryngeal pain [Recovered/Resolved]

NARRATIVE: CASE EVENT DATE: 20120619
